FAERS Safety Report 25813722 (Version 3)
Quarter: 2025Q3

REPORT INFORMATION
  Report Type: Spontaneous
  Country: US (occurrence: US)
  Receive Date: 20250917
  Receipt Date: 20250924
  Transmission Date: 20251020
  Serious: Yes (Hospitalization, Other)
  Sender: BAYER HEALTHCARE LLC
  Company Number: US-BAYER-2025A121420

PATIENT
  Age: 63 Year
  Sex: Female

DRUGS (1)
  1. ESTRADIOL [Suspect]
     Active Substance: ESTRADIOL
     Indication: Hormone replacement therapy
     Route: 048

REACTIONS (7)
  - Renal infarct [None]
  - Renal artery stenosis [Recovered/Resolved]
  - Metabolic acidosis [Unknown]
  - Hyponatraemia [Unknown]
  - Embolism [None]
  - Product use in unapproved indication [None]
  - Product prescribing issue [None]
